FAERS Safety Report 26047369 (Version 1)
Quarter: 2025Q4

REPORT INFORMATION
  Report Type: Spontaneous
  Country: US (occurrence: US)
  Receive Date: 20251114
  Receipt Date: 20251114
  Transmission Date: 20260118
  Serious: Yes (Life-Threatening, Hospitalization)
  Sender: BIOMARIN
  Company Number: US-BIOMARINAP-US-2025-169903

PATIENT
  Age: 11 Year
  Sex: Female
  Weight: 35.7 kg

DRUGS (11)
  1. BRINEURA [Suspect]
     Active Substance: CERLIPONASE ALFA
     Indication: Neuronal ceroid lipofuscinosis
     Dosage: 300 MILLIGRAM, QOW
     Dates: start: 20180131
  2. BRIVIACT [Concomitant]
     Active Substance: BRIVARACETAM
     Indication: Seizure
     Dosage: 100 MILLIGRAM, BID
  3. ONFI [Concomitant]
     Active Substance: CLOBAZAM
     Indication: Seizure
     Dosage: 12.5 MILLIGRAM, QD
  4. ONFI [Concomitant]
     Active Substance: CLOBAZAM
     Dosage: 18.75 MILLIGRAM, TID
  5. FELBATOL [Concomitant]
     Active Substance: FELBAMATE
     Indication: Seizure
     Dosage: 400 MILLIGRAM, BID
  6. LAMICTAL [Concomitant]
     Active Substance: LAMOTRIGINE
     Indication: Seizure
     Dosage: 100 MILLIGRAM, BID
  7. KLONOPIN [Concomitant]
     Active Substance: CLONAZEPAM
     Indication: Seizure
     Dosage: 1 MILLIGRAM, BID
  8. MIDAZOLAM [Concomitant]
     Active Substance: MIDAZOLAM
     Indication: Product used for unknown indication
     Dosage: 0.2 MILLIGRAM/KILOGRAM
  9. LORAZEPAM [Concomitant]
     Active Substance: LORAZEPAM
     Indication: Product used for unknown indication
     Dosage: 0.1 MILLIGRAM/KILOGRAM
  10. LEVETIRACETAM [Concomitant]
     Active Substance: LEVETIRACETAM
     Indication: Product used for unknown indication
     Dosage: 60 MILLIGRAM/KILOGRAM
  11. SENNA [Concomitant]
     Active Substance: SENNOSIDES
     Indication: Product used for unknown indication

REACTIONS (11)
  - Acute respiratory failure [Not Recovered/Not Resolved]
  - Pneumonia [Not Recovered/Not Resolved]
  - Seizure [Not Recovered/Not Resolved]
  - Encephalopathy [Not Recovered/Not Resolved]
  - Somnolence [Not Recovered/Not Resolved]
  - Hypoxia [Not Recovered/Not Resolved]
  - Upper airway obstruction [Not Recovered/Not Resolved]
  - Hypoventilation [Not Recovered/Not Resolved]
  - Bronchial secretion retention [Not Recovered/Not Resolved]
  - Hypercapnia [Not Recovered/Not Resolved]
  - Electrolyte imbalance [Not Recovered/Not Resolved]

NARRATIVE: CASE EVENT DATE: 20251023
